FAERS Safety Report 8110751-3 (Version None)
Quarter: 2012Q1

REPORT INFORMATION
  Report Type: 
  Country: None (occurrence: None)
  Receive Date: 20120203
  Receipt Date: 20111014
  Transmission Date: 20120608
  Serious: No
  Sender: FDA-Public Use
  Company Number: US-GLAXOSMITHKLINE-A0949146A

PATIENT
  Age: 70 Year
  Sex: Female

DRUGS (13)
  1. ZINC SULFATE [Concomitant]
  2. KLONOPIN [Concomitant]
  3. POTASSIUM [Concomitant]
  4. VITAMIN D [Concomitant]
  5. HORIZANT [Suspect]
     Indication: RESTLESS LEGS SYNDROME
     Dosage: 600MG PER DAY
     Route: 048
     Dates: start: 20110914
  6. STRATTERA [Concomitant]
  7. TENORMIN [Concomitant]
  8. MIRAPEX [Concomitant]
  9. RESTORIL [Concomitant]
  10. LORTAB [Concomitant]
  11. LASIX [Concomitant]
  12. PRILOSEC [Concomitant]
  13. MULTI-VITAMINS [Concomitant]

REACTIONS (2)
  - FEELING HOT [None]
  - HYPERHIDROSIS [None]
